FAERS Safety Report 4685872-8 (Version None)
Quarter: 2005Q2

REPORT INFORMATION
  Report Type: 
  Country: None (occurrence: None)
  Receive Date: 20050606
  Receipt Date: 20050606
  Transmission Date: 20051028
  Serious: Yes (Other)
  Sender: FDA-Public Use
  Company Number: None

PATIENT
  Sex: Female
  Weight: 75 kg

DRUGS (10)
  1. OXALIPLATIN 85 MG/M2 IV DAY 1 [Suspect]
     Indication: COLON CANCER
     Dosage: 85 MG/M2 IV DAY 1
     Route: 042
     Dates: start: 20050428
  2. LEUCOVORIN 400 MG/M2 IV DAY 1 [Suspect]
     Indication: COLON CANCER
     Dosage: 400 MG/M2 IV DAY 1
     Route: 042
  3. FLUOROURACIL [Suspect]
     Indication: COLON CANCER
     Dosage: SEE IMAGE
  4. COMPAZINE [Concomitant]
  5. DECADRON [Concomitant]
  6. DESYREL [Concomitant]
  7. KYTRIL [Concomitant]
  8. NEXIUM [Concomitant]
  9. VICODIN [Concomitant]
  10. ZOFRAN [Concomitant]

REACTIONS (28)
  - ALANINE AMINOTRANSFERASE INCREASED [None]
  - ASPARTATE AMINOTRANSFERASE INCREASED [None]
  - BLOOD BILIRUBIN INCREASED [None]
  - CARDIAC ARREST [None]
  - COMPUTERISED TOMOGRAM ABNORMAL [None]
  - COUGH [None]
  - DYSPNOEA [None]
  - HAEMODIALYSIS [None]
  - HERPES SIMPLEX [None]
  - HYPOXIA [None]
  - LUNG INFILTRATION [None]
  - LUNG NEOPLASM [None]
  - NECROSIS [None]
  - NEUTROPENIA [None]
  - OXYGEN SATURATION DECREASED [None]
  - PANCYTOPENIA [None]
  - PULMONARY EMBOLISM [None]
  - RENAL FAILURE ACUTE [None]
  - RESPIRATORY FAILURE [None]
  - SINUS TACHYCARDIA [None]
  - SPUTUM CULTURE POSITIVE [None]
  - STAPHYLOCOCCAL INFECTION [None]
  - STAPHYLOCOCCAL SEPSIS [None]
  - SYSTEMIC INFLAMMATORY RESPONSE SYNDROME [None]
  - THROMBOCYTOPENIA [None]
  - TRACHEAL ULCER [None]
  - VENOUS OCCLUSION [None]
  - VENOUS THROMBOSIS LIMB [None]
